FAERS Safety Report 15249517 (Version 1)
Quarter: 2018Q3

REPORT INFORMATION
  Report Type: Spontaneous
  Country: US (occurrence: US)
  Receive Date: 20180807
  Receipt Date: 20180807
  Transmission Date: 20181010
  Serious: No
  Sender: FDA-Public Use
  Company Number: US-PERRIGO-18US005043

PATIENT
  Age: 18 Year
  Sex: Male
  Weight: 99.77 kg

DRUGS (3)
  1. LORATADINE. [Suspect]
     Active Substance: LORATADINE
     Indication: SEASONAL ALLERGY
     Dosage: 10 MG, SINGLE
     Route: 048
     Dates: start: 20180506, end: 20180506
  2. ROHTO [Concomitant]
     Indication: EYE PRURITUS
     Dosage: UNK, PRN
     Route: 047
     Dates: start: 2017
  3. ROHTO [Concomitant]
     Indication: OCULAR HYPERAEMIA

REACTIONS (5)
  - Swelling face [Recovered/Resolved]
  - Skin irritation [Recovered/Resolved]
  - Eye swelling [Recovered/Resolved]
  - Expired product administered [Recovered/Resolved]
  - Hypersensitivity [Recovered/Resolved]

NARRATIVE: CASE EVENT DATE: 20180506
